FAERS Safety Report 18347264 (Version 1)
Quarter: 2020Q4

REPORT INFORMATION
  Report Type: Spontaneous
  Country: US (occurrence: US)
  Receive Date: 20201005
  Receipt Date: 20201005
  Transmission Date: 20210114
  Serious: Yes (Life-Threatening, Hospitalization, Other)
  Sender: FDA-Public Use
  Company Number: US-AMGEN-USASP2020158548

PATIENT
  Sex: Female

DRUGS (3)
  1. NEUPOGEN [Suspect]
     Active Substance: FILGRASTIM
     Indication: PROPHYLAXIS
     Dosage: 5 MICROGRAM/KILOGRAM, QD
     Route: 065
  2. TOPOTECAN [Suspect]
     Active Substance: TOPOTECAN HYDROCHLORIDE
     Indication: OVARIAN CANCER
     Route: 065
  3. EPOETIN ALFA [Suspect]
     Active Substance: ERYTHROPOIETIN
     Indication: ANAEMIA
     Dosage: UNK
     Route: 065

REACTIONS (17)
  - Renal disorder [Unknown]
  - Nausea [Unknown]
  - Pyrexia [Unknown]
  - Alopecia [Unknown]
  - Haematotoxicity [Unknown]
  - Blood creatinine increased [Unknown]
  - Thrombocytopenia [Unknown]
  - Blood alkaline phosphatase decreased [Unknown]
  - Ovarian cancer [Unknown]
  - Fatigue [Unknown]
  - Mucosal inflammation [Unknown]
  - Neutropenia [Unknown]
  - Gastrointestinal toxicity [Unknown]
  - Skin disorder [Unknown]
  - Drug ineffective [Unknown]
  - Anaemia [Unknown]
  - Vomiting [Unknown]
